FAERS Safety Report 4548584-7 (Version None)
Quarter: 2004Q4

REPORT INFORMATION
  Report Type: 
  Country: None (occurrence: None)
  Receive Date: 20041227
  Receipt Date: 20040917
  Transmission Date: 20050328
  Serious: No
  Sender: FDA-Public Use
  Company Number: 04P-163-0273679-00

PATIENT
  Age: 64 Year
  Sex: Female
  Weight: 58.0604 kg

DRUGS (4)
  1. HUMIRA [Suspect]
     Indication: RHEUMATOID ARTHRITIS
     Dosage: 40 MG, 1 IN 15 D, SUBCUTANEOUS
     Route: 058
     Dates: start: 20030901
  2. LEVOTHYROXINE SODIUM [Concomitant]
  3. PROPACET 100 [Concomitant]
  4. ALPRAZOLAM [Concomitant]

REACTIONS (8)
  - ARTHRALGIA [None]
  - CHILLS [None]
  - COUGH [None]
  - HYPERHIDROSIS [None]
  - NERVOUSNESS [None]
  - PALPITATIONS [None]
  - RASH [None]
  - TINNITUS [None]
